FAERS Safety Report 19349875 (Version 4)
Quarter: 2023Q2

REPORT INFORMATION
  Report Type: Report from Study
  Country: US (occurrence: None)
  Receive Date: 20210531
  Receipt Date: 20230405
  Transmission Date: 20230722
  Serious: Yes (Life-Threatening, Hospitalization)
  Sender: FDA-Public Use
  Company Number: US-ROCHE-2768304

PATIENT
  Sex: Male

DRUGS (2)
  1. TIRAGOLUMAB [Suspect]
     Active Substance: TIRAGOLUMAB
     Indication: Oesophageal carcinoma
     Dosage: ON 14/JAN/2021, MOST RECENT DOSE WAS ADMINISTERED
     Route: 042
     Dates: start: 20201105
  2. ATEZOLIZUMAB [Suspect]
     Active Substance: ATEZOLIZUMAB
     Indication: Oesophageal carcinoma
     Dosage: SUBSEQUENT DOSE RECEIVED ON 19/NOV/2020, 03/DEC/2020, 17/DEC/2020, 31/DEC/2020, 14/JAN/2021 AND 10/F
     Route: 041
     Dates: start: 20201105

REACTIONS (3)
  - Abdominal pain [Recovered/Resolved]
  - Back pain [Unknown]
  - Metastases to bone [Unknown]

NARRATIVE: CASE EVENT DATE: 20210209
